FAERS Safety Report 4579160-8 (Version None)
Quarter: 2005Q1

REPORT INFORMATION
  Report Type: 
  Country: None (occurrence: None)
  Receive Date: 20050208
  Receipt Date: 20050208
  Transmission Date: 20050727
  Serious: Yes (Other)
  Sender: FDA-Public Use
  Company Number: None

PATIENT
  Sex: Male
  Weight: 81.6475 kg

DRUGS (1)
  1. FLOMAX [Suspect]
     Indication: BENIGN PROSTATIC HYPERPLASIA
     Dosage: 0.4MG  QD ORAL
     Route: 048

REACTIONS (5)
  - CATARACT OPERATION COMPLICATION [None]
  - IRIDOCELE [None]
  - IRIS DISORDER [None]
  - VITREOUS DISORDER [None]
  - VITREOUS PROLAPSE [None]
